FAERS Safety Report 21659926 (Version 7)
Quarter: 2024Q1

REPORT INFORMATION
  Report Type: Spontaneous
  Country: JP (occurrence: JP)
  Receive Date: 20221130
  Receipt Date: 20240219
  Transmission Date: 20240410
  Serious: Yes (Death, Hospitalization, Disabling, Other)
  Sender: FDA-Public Use
  Company Number: JP-BRISTOL-MYERS SQUIBB COMPANY-2022-143066

PATIENT
  Age: 72 Year
  Sex: Male
  Weight: 57.1 kg

DRUGS (14)
  1. YERVOY [Suspect]
     Active Substance: IPILIMUMAB
     Indication: Non-small cell lung cancer recurrent
     Route: 041
     Dates: start: 20220329, end: 20220622
  2. OPDIVO [Suspect]
     Active Substance: NIVOLUMAB
     Indication: Non-small cell lung cancer recurrent
     Route: 041
     Dates: start: 20220329, end: 20220622
  3. DAPAGLIFLOZIN [Suspect]
     Active Substance: DAPAGLIFLOZIN
     Indication: Product used for unknown indication
     Route: 048
     Dates: start: 20220420, end: 20220727
  4. BISOPROLOL [Suspect]
     Active Substance: BISOPROLOL\BISOPROLOL FUMARATE
     Indication: Cardiac failure chronic
     Route: 048
     Dates: start: 20220420
  5. BISOPROLOL [Suspect]
     Active Substance: BISOPROLOL\BISOPROLOL FUMARATE
     Route: 048
     Dates: end: 20220826
  6. BISOPROLOL [Suspect]
     Active Substance: BISOPROLOL\BISOPROLOL FUMARATE
     Route: 048
     Dates: start: 20220827
  7. CISPLATIN [Concomitant]
     Active Substance: CISPLATIN
     Indication: Non-small cell lung cancer recurrent
     Dates: start: 20220329, end: 20220329
  8. PEMETREXED [Concomitant]
     Active Substance: PEMETREXED
     Indication: Non-small cell lung cancer recurrent
     Dates: start: 20220329, end: 20220329
  9. PANVITAN JUNIOR [Concomitant]
     Indication: Product used for unknown indication
     Dates: start: 20220311, end: 20220419
  10. MAGNESIUM OXIDE [Concomitant]
     Active Substance: MAGNESIUM OXIDE
     Indication: Product used for unknown indication
     Route: 048
  11. MAGNESIUM OXIDE [Concomitant]
     Active Substance: MAGNESIUM OXIDE
     Route: 048
  12. AMITIZA [Concomitant]
     Active Substance: LUBIPROSTONE
     Indication: Product used for unknown indication
     Dosage: 24 ?G, EVERYDAY
     Route: 048
  13. CARBOCYSTEINE [Concomitant]
     Active Substance: CARBOCYSTEINE
     Indication: Productive cough
     Route: 048
  14. CARBOCYSTEINE [Concomitant]
     Active Substance: CARBOCYSTEINE
     Dosage: UNK UNK, Q8H
     Route: 048

REACTIONS (14)
  - Immune-mediated hyperthyroidism [Recovering/Resolving]
  - Immune-mediated hepatic disorder [Fatal]
  - Fulminant type 1 diabetes mellitus [Fatal]
  - Immune-mediated hypothyroidism [Recovering/Resolving]
  - Cardiac failure chronic [Fatal]
  - Acute kidney injury [Unknown]
  - Benign prostatic hyperplasia [Unknown]
  - Fungal infection [Unknown]
  - Tinea pedis [Unknown]
  - Nervous system disorder [Unknown]
  - Thyroiditis [Recovering/Resolving]
  - Hyponatraemia [Unknown]
  - Xerosis [Unknown]
  - Malaise [Unknown]

NARRATIVE: CASE EVENT DATE: 20220420
